FAERS Safety Report 10249334 (Version 1)
Quarter: 2014Q2

REPORT INFORMATION
  Report Type: Spontaneous
  Country: US (occurrence: US)
  Receive Date: 20140620
  Receipt Date: 20140620
  Transmission Date: 20141212
  Serious: Yes (Other)
  Sender: FDA-Public Use
  Company Number: US-PFIZER INC-2014165831

PATIENT
  Sex: 0

DRUGS (2)
  1. GABAPENTIN [Suspect]
     Indication: ANXIETY
     Dosage: 100 MG, UNK
  2. GABAPENTIN [Suspect]
     Indication: DEPRESSION

REACTIONS (4)
  - Off label use [Unknown]
  - Restlessness [Unknown]
  - Anxiety [Unknown]
  - Depression [Unknown]
